FAERS Safety Report 14499492 (Version 1)
Quarter: 2018Q1

REPORT INFORMATION
  Report Type: Spontaneous
  Country: US (occurrence: US)
  Receive Date: 20180207
  Receipt Date: 20180207
  Transmission Date: 20180509
  Serious: No
  Sender: FDA-Public Use
  Company Number: US-PERRIGO-17US002082

PATIENT
  Age: 40 Year
  Sex: Female
  Weight: 56.69 kg

DRUGS (3)
  1. CETIRIZINE HYDROCHLORIDE. [Suspect]
     Active Substance: CETIRIZINE HYDROCHLORIDE
     Dosage: 10 MG, QHS
     Route: 048
     Dates: start: 20170220
  2. BIOTIN [Concomitant]
     Active Substance: BIOTIN
     Indication: SUPPLEMENTATION THERAPY
     Dosage: UNK
     Route: 065
     Dates: start: 201701
  3. CETIRIZINE HYDROCHLORIDE. [Suspect]
     Active Substance: CETIRIZINE HYDROCHLORIDE
     Indication: HYPERSENSITIVITY
     Dosage: 10 MG, QHS
     Route: 048
     Dates: start: 2015, end: 20170219

REACTIONS (3)
  - Abnormal dreams [Unknown]
  - Nightmare [Unknown]
  - Somnolence [Unknown]

NARRATIVE: CASE EVENT DATE: 2015
